FAERS Safety Report 4875000-8 (Version None)
Quarter: 2006Q1

REPORT INFORMATION
  Report Type: 
  Country: None (occurrence: None)
  Receive Date: 20060109
  Receipt Date: 20051024
  Transmission Date: 20060701
  Serious: Yes (Disabling)
  Sender: FDA-Public Use
  Company Number: US-BRISTOL-MYERS SQUIBB COMPANY-13156104

PATIENT
  Age: 80 Year
  Sex: Male
  Weight: 81 kg

DRUGS (2)
  1. COUMADIN [Suspect]
     Indication: ATRIAL FLUTTER
     Dosage: DURATION: 3 MONTHS OR SO; STOPPED 2 OR 3 YEARS AGO
     Route: 048
     Dates: start: 20020712, end: 20020926
  2. MAVIK [Concomitant]

REACTIONS (1)
  - PARALYSIS [None]
